FAERS Safety Report 7488920-5 (Version None)
Quarter: 2011Q2

REPORT INFORMATION
  Report Type: 
  Country: None (occurrence: None)
  Receive Date: 20110518
  Receipt Date: 20110511
  Transmission Date: 20111010
  Serious: Yes (Other)
  Sender: FDA-Public Use
  Company Number: ES-AMGEN-ESPSP2011024497

PATIENT
  Sex: Female

DRUGS (2)
  1. NPLATE [Suspect]
     Indication: IDIOPATHIC THROMBOCYTOPENIC PURPURA
     Dosage: 6 A?G/KG, UNK
  2. NPLATE [Suspect]
     Dosage: 10 A?G/KG, UNK

REACTIONS (2)
  - THERAPEUTIC RESPONSE DECREASED [None]
  - DRUG SPECIFIC ANTIBODY PRESENT [None]
